FAERS Safety Report 18615443 (Version 2)
Quarter: 2023Q4

REPORT INFORMATION
  Report Type: Spontaneous
  Country: DE (occurrence: DE)
  Receive Date: 20201215
  Receipt Date: 20231110
  Transmission Date: 20240110
  Serious: Yes (Other)
  Sender: FDA-Public Use
  Company Number: DE-SA-2020SA354862

PATIENT
  Age: 34 Year
  Sex: Female

DRUGS (1)
  1. ALEMTUZUMAB [Suspect]
     Active Substance: ALEMTUZUMAB
     Indication: Multiple sclerosis
     Dosage: UNK

REACTIONS (3)
  - Autoimmune pancytopenia [Unknown]
  - Illness [Unknown]
  - Lymphodepletion [Unknown]

NARRATIVE: CASE EVENT DATE: 20201207
